FAERS Safety Report 7521829-7 (Version None)
Quarter: 2011Q2

REPORT INFORMATION
  Report Type: 
  Country: None (occurrence: None)
  Receive Date: 20110603
  Receipt Date: 20110527
  Transmission Date: 20111010
  Serious: Yes (Hospitalization, Other)
  Sender: FDA-Public Use
  Company Number: DE-ABBOTT-11P-062-0699391-00

PATIENT
  Sex: Female
  Weight: 74 kg

DRUGS (14)
  1. HUMIRA [Suspect]
     Dates: start: 20070530
  2. LEVOCETIRIZINE DIHYDROCHLORIDE [Concomitant]
     Indication: PRODUCT USED FOR UNKNOWN INDICATION
  3. FOLIC ACID [Concomitant]
     Indication: PRODUCT USED FOR UNKNOWN INDICATION
  4. PREDNISONE [Concomitant]
     Indication: CROHN'S DISEASE
     Dosage: 5 MG DAILY
     Dates: start: 19950701, end: 20110404
  5. HUMIRA [Suspect]
     Route: 058
     Dates: start: 20060801
  6. HUMIRA [Suspect]
     Indication: CROHN'S DISEASE
     Route: 058
     Dates: start: 20060515, end: 20060701
  7. STEROID [Concomitant]
     Indication: CROHN'S DISEASE
     Route: 048
  8. PREDNISOLONE [Concomitant]
     Indication: PRODUCT USED FOR UNKNOWN INDICATION
     Dosage: 5MG DAILY
  9. NOVALGIN [Concomitant]
     Indication: PRODUCT USED FOR UNKNOWN INDICATION
  10. ZINK [Concomitant]
     Indication: PRODUCT USED FOR UNKNOWN INDICATION
     Dosage: 5MG DAILY
  11. HYDROCORTISONE [Concomitant]
     Indication: PRODUCT USED FOR UNKNOWN INDICATION
     Dosage: 5 MG DAILY
     Dates: start: 20110405
  12. ESOMEPRAZOLE MAGNESIUM [Concomitant]
     Indication: PRODUCT USED FOR UNKNOWN INDICATION
  13. BISOPROLOL FUMARATE [Concomitant]
     Indication: PRODUCT USED FOR UNKNOWN INDICATION
     Dosage: 2.5MG DAILY
  14. TEMGESIC [Concomitant]
     Indication: PRODUCT USED FOR UNKNOWN INDICATION
     Dosage: 5MG DAILY

REACTIONS (7)
  - DECREASED APPETITE [None]
  - OBSTRUCTION GASTRIC [None]
  - ABDOMINAL PAIN [None]
  - PYLORIC STENOSIS [None]
  - NAUSEA [None]
  - GASTRITIS [None]
  - ABDOMINAL PAIN UPPER [None]
